FAERS Safety Report 25587498 (Version 1)
Quarter: 2025Q3

REPORT INFORMATION
  Report Type: Spontaneous
  Country: US (occurrence: None)
  Receive Date: 20250721
  Receipt Date: 20250721
  Transmission Date: 20251021
  Serious: Yes (Disabling)
  Sender: FDA-CTU
  Company Number: None

PATIENT

DRUGS (1)
  1. AMVUTTRA [Suspect]
     Active Substance: VUTRISIRAN
     Indication: Amyloidosis
     Route: 058
     Dates: start: 20250618

REACTIONS (2)
  - Pain in extremity [None]
  - Musculoskeletal stiffness [None]

NARRATIVE: CASE EVENT DATE: 20250712
